FAERS Safety Report 18365967 (Version 9)
Quarter: 2022Q4

REPORT INFORMATION
  Report Type: Spontaneous
  Country: US (occurrence: US)
  Receive Date: 20201009
  Receipt Date: 20221222
  Transmission Date: 20230113
  Serious: No
  Sender: FDA-Public Use
  Company Number: US-PFIZER INC-2020385940

PATIENT
  Age: 67 Year
  Sex: Female
  Weight: 54.43 kg

DRUGS (4)
  1. PREMARIN [Suspect]
     Active Substance: ESTROGENS, CONJUGATED
     Indication: Hormone replacement therapy
     Dosage: 1.25 MG
  2. PREMARIN [Suspect]
     Active Substance: ESTROGENS, CONJUGATED
     Dosage: UNK
  3. PREMARIN [Suspect]
     Active Substance: ESTROGENS, CONJUGATED
     Dosage: 1.25 MG, 1X/DAY (FOUR HOURS AWAY FROM HAVE EATEN ANY FOOD AND FOUR HOURS APART FROM HER SYNTHROID)
     Route: 048
  4. SYNTHROID [Concomitant]
     Active Substance: LEVOTHYROXINE SODIUM
     Dosage: UNK

REACTIONS (13)
  - Drug ineffective [Unknown]
  - Circadian rhythm sleep disorder [Unknown]
  - Cognitive disorder [Unknown]
  - Blood testosterone abnormal [Unknown]
  - Blood oestrogen abnormal [Unknown]
  - Body height decreased [Unknown]
  - Renal disorder [Unknown]
  - Abdominal pain upper [Unknown]
  - Lactose intolerance [Unknown]
  - Soliloquy [Unknown]
  - Poor quality product administered [Unknown]
  - Product physical issue [Unknown]
  - Illness [Not Recovered/Not Resolved]

NARRATIVE: CASE EVENT DATE: 20220101
